FAERS Safety Report 6275499-9 (Version None)
Quarter: 2009Q3

REPORT INFORMATION
  Report Type: 
  Country: None (occurrence: None)
  Receive Date: 20090721
  Receipt Date: 20090707
  Transmission Date: 20100115
  Serious: Yes (Hospitalization)
  Sender: FDA-Public Use
  Company Number: AT-GENENTECH-284788

PATIENT
  Sex: Male

DRUGS (3)
  1. BEVACIZUMAB [Suspect]
     Indication: COLON CANCER
     Dosage: 500 MG, Q3W
     Route: 042
     Dates: start: 20070720
  2. CAPECITABINE [Suspect]
     Indication: COLON CANCER
     Dosage: 2000 MG, BID
     Route: 048
     Dates: start: 20070720
  3. EFFORTIL [Concomitant]
     Indication: DRUG USE FOR UNKNOWN INDICATION

REACTIONS (3)
  - GENERAL PHYSICAL HEALTH DETERIORATION [None]
  - ILL-DEFINED DISORDER [None]
  - MUCOSAL INFLAMMATION [None]
